FAERS Safety Report 14913114 (Version 4)
Quarter: 2018Q3

REPORT INFORMATION
  Report Type: Spontaneous
  Country: DE (occurrence: DE)
  Receive Date: 20180518
  Receipt Date: 20180702
  Transmission Date: 20181010
  Serious: Yes (Hospitalization)
  Sender: FDA-Public Use
  Company Number: PHHY2018DE001952

PATIENT
  Sex: Female

DRUGS (11)
  1. DOXORUBICIN [Suspect]
     Active Substance: DOXORUBICIN
     Indication: B-CELL LYMPHOMA
     Dosage: 74 MG, Q2W
     Route: 042
     Dates: start: 20180130
  2. VINCRISTINE [Suspect]
     Active Substance: VINCRISTINE
     Indication: B-CELL LYMPHOMA
     Dosage: 2 MG, Q2W
     Route: 042
     Dates: start: 20180130
  3. RITUXIMAB. [Suspect]
     Active Substance: RITUXIMAB
     Dosage: 550 MG, Q2W
     Route: 042
     Dates: start: 20180222
  4. CYCLOPHOSPHAMIDE. [Suspect]
     Active Substance: CYCLOPHOSPHAMIDE
     Indication: B-CELL LYMPHOMA
     Dosage: 110 MG, Q2W
     Route: 042
     Dates: start: 20180130
  5. PREDNISOLONE. [Suspect]
     Active Substance: PREDNISOLONE
     Dosage: 100 MG, Q2W
     Route: 048
     Dates: start: 20180222
  6. PEGFILGRASTIM [Suspect]
     Active Substance: PEGFILGRASTIM
     Indication: B-CELL LYMPHOMA
     Dosage: 6 MG, Q2W
     Route: 058
     Dates: start: 20180202
  7. VINCRISTINE [Suspect]
     Active Substance: VINCRISTINE
     Dosage: 2 MG, Q2W
     Route: 042
     Dates: start: 20180222
  8. RITUXIMAB. [Suspect]
     Active Substance: RITUXIMAB
     Indication: B-CELL LYMPHOMA
     Dosage: 550 MG, Q2W
     Route: 042
     Dates: start: 20180129
  9. CYCLOPHOSPHAMIDE. [Suspect]
     Active Substance: CYCLOPHOSPHAMIDE
     Dosage: 110 MG, Q2W
     Route: 042
     Dates: start: 20180222
  10. DOXORUBICIN [Suspect]
     Active Substance: DOXORUBICIN
     Dosage: 74 MG, Q2W
     Route: 042
     Dates: start: 20180222
  11. PREDNISOLONE. [Suspect]
     Active Substance: PREDNISOLONE
     Indication: B-CELL LYMPHOMA
     Dosage: 100 MG, Q2W
     Route: 048
     Dates: start: 20180129

REACTIONS (1)
  - Gastrointestinal pain [Recovered/Resolved]

NARRATIVE: CASE EVENT DATE: 20180208
